FAERS Safety Report 20010806 (Version 2)
Quarter: 2021Q4

REPORT INFORMATION
  Report Type: Spontaneous
  Country: CA (occurrence: CA)
  Receive Date: 20211028
  Receipt Date: 20211102
  Transmission Date: 20220304
  Serious: Yes (Other)
  Sender: FDA-Public Use
  Company Number: CA-TEVA-2021-CA-1968795

PATIENT
  Age: 29 Year
  Sex: Male

DRUGS (6)
  1. METHYLPHENIDATE [Suspect]
     Active Substance: METHYLPHENIDATE
     Indication: Behavioural therapy
     Dosage: 10 MILLIGRAM DAILY;
     Route: 065
  2. AMANTADINE [Suspect]
     Active Substance: AMANTADINE
     Indication: Behavioural therapy
     Dosage: 200 MILLIGRAM DAILY;
     Route: 065
  3. BACLOFEN [Concomitant]
     Active Substance: BACLOFEN
     Indication: Muscle spasticity
     Dosage: 45 MILLIGRAM DAILY;
     Route: 065
  4. LEVETIRACETAM [Concomitant]
     Active Substance: LEVETIRACETAM
     Indication: Seizure prophylaxis
     Dosage: 3000 MILLIGRAM DAILY;
     Route: 065
  5. LACOSAMIDE [Concomitant]
     Active Substance: LACOSAMIDE
     Indication: Seizure prophylaxis
     Dosage: 50 MILLIGRAM DAILY;
     Route: 065
  6. VENLAFAXINE [Concomitant]
     Active Substance: VENLAFAXINE HYDROCHLORIDE
     Indication: Antidepressant therapy
     Dosage: 150 MILLIGRAM DAILY; PEAKED DOSE
     Route: 065

REACTIONS (2)
  - Autonomic nervous system imbalance [Recovering/Resolving]
  - Petit mal epilepsy [Recovering/Resolving]
